FAERS Safety Report 24650747 (Version 1)
Quarter: 2024Q4

REPORT INFORMATION
  Report Type: Spontaneous
  Country: GR (occurrence: GR)
  Receive Date: 20241122
  Receipt Date: 20241122
  Transmission Date: 20250114
  Serious: Yes (Other)
  Sender: RANBAXY
  Company Number: GR-SUN PHARMACEUTICAL INDUSTRIES LTD-2024R1-480191

PATIENT
  Age: 57 Year
  Sex: Male

DRUGS (7)
  1. FLUCONAZOLE [Suspect]
     Active Substance: FLUCONAZOLE
     Indication: Autoimmune haemolytic anaemia
     Dosage: 200 MILLIGRAM, OD
     Route: 048
  2. METHYLPREDNISOLONE [Suspect]
     Active Substance: METHYLPREDNISOLONE
     Indication: Autoimmune haemolytic anaemia
     Dosage: 32 MILLIGRAM, OD
     Route: 048
  3. METHYLPREDNISOLONE [Suspect]
     Active Substance: METHYLPREDNISOLONE
     Dosage: 4 MILLIGRAM, OD
     Route: 048
  4. SULFAMETHOXAZOLE\TRIMETHOPRIM [Suspect]
     Active Substance: SULFAMETHOXAZOLE\TRIMETHOPRIM
     Indication: Autoimmune haemolytic anaemia
     Dosage: 800+160 MG OD
     Route: 065
  5. VALACYCLOVIR [Suspect]
     Active Substance: VALACYCLOVIR HYDROCHLORIDE
     Indication: Autoimmune haemolytic anaemia
     Dosage: 500 MILLIGRAM, OD
     Route: 065
  6. DIMETHINDENE [Suspect]
     Active Substance: DIMETHINDENE
     Indication: Autoimmune haemolytic anaemia
     Dosage: 10 MILLIGRAM, OD
     Route: 048
  7. FOLIC ACID [Suspect]
     Active Substance: FOLIC ACID
     Indication: Autoimmune haemolytic anaemia
     Dosage: 5 MILLIGRAM, OD
     Route: 065

REACTIONS (1)
  - Treatment failure [Unknown]
